FAERS Safety Report 5885685-5 (Version None)
Quarter: 2008Q3

REPORT INFORMATION
  Report Type: 
  Country: None (occurrence: None)
  Receive Date: 20080912
  Receipt Date: 20080902
  Transmission Date: 20090109
  Serious: Yes (Hospitalization, Disabling)
  Sender: FDA-Public Use
  Company Number: 2008-02740

PATIENT
  Age: 79 Year
  Sex: Male
  Weight: 71 kg

DRUGS (3)
  1. VELCADE [Suspect]
     Indication: MULTIPLE MYELOMA
     Dosage: 1.3 MG, UNK, INTRAVENOUS
     Route: 042
     Dates: start: 20080414, end: 20080721
  2. PREDNISONE TAB [Suspect]
     Indication: MULTIPLE MYELOMA
     Dosage: 60 MG, UNK, ORAL
     Route: 048
     Dates: start: 20080414, end: 20080703
  3. MELPHALAN(MELPHALAN) VIAL [Suspect]
     Indication: MULTIPLE MYELOMA
     Dosage: 9 MG, UNK, ORAL
     Route: 048
     Dates: start: 20080414, end: 20080703

REACTIONS (7)
  - DIZZINESS [None]
  - DYSARTHRIA [None]
  - EXTRAPYRAMIDAL DISORDER [None]
  - NEUROPATHY PERIPHERAL [None]
  - POLYNEUROPATHY [None]
  - PYRAMIDAL TRACT SYNDROME [None]
  - TOXIC ENCEPHALOPATHY [None]
